FAERS Safety Report 9431082 (Version 1)
Quarter: 2013Q3

REPORT INFORMATION
  Report Type: Spontaneous
  Country: AU (occurrence: AU)
  Receive Date: 20130730
  Receipt Date: 20130730
  Transmission Date: 20140515
  Serious: Yes (Other)
  Sender: FDA-Public Use
  Company Number: AU-ROCHE-1254738

PATIENT
  Age: 61 Year
  Sex: Female
  Weight: 54 kg

DRUGS (3)
  1. HERCEPTIN [Suspect]
     Indication: HER-2 POSITIVE BREAST CANCER
     Route: 065
  2. TAXOTERE [Concomitant]
     Indication: HER-2 POSITIVE BREAST CANCER
  3. CARBOPLATIN [Concomitant]
     Indication: HER-2 POSITIVE BREAST CANCER

REACTIONS (1)
  - Metastases to central nervous system [Unknown]
